FAERS Safety Report 8660639 (Version 3)
Quarter: 2013Q4

REPORT INFORMATION
  Report Type: Spontaneous
  Country: US (occurrence: US)
  Receive Date: 20120711
  Receipt Date: 20131101
  Transmission Date: 20140711
  Serious: No
  Sender: FDA-Public Use
  Company Number: US-009507513-1207USA000278

PATIENT
  Age: 46 Year
  Sex: Male

DRUGS (3)
  1. PEGINTRON [Suspect]
     Indication: HEPATITIS C
     Dosage: 150 MICROGRAM, QW
  2. LISINOPRIL [Concomitant]
  3. SEROQUEL [Concomitant]

REACTIONS (8)
  - Bronchitis [Unknown]
  - Nasopharyngitis [Unknown]
  - Vomiting [Unknown]
  - Product quality issue [Unknown]
  - Pneumonia [Unknown]
  - Malaise [Unknown]
  - Abdominal discomfort [Unknown]
  - Cough [Unknown]
